FAERS Safety Report 5312373-6 (Version None)
Quarter: 2007Q2

REPORT INFORMATION
  Report Type: 
  Country: None (occurrence: None)
  Receive Date: 20070430
  Receipt Date: 20070416
  Transmission Date: 20071010
  Serious: Yes (Hospitalization, Other)
  Sender: FDA-Public Use
  Company Number: FR-MERCK-0703FRA00076

PATIENT
  Age: 26 Year
  Sex: Female

DRUGS (9)
  1. INDOCIN SR [Suspect]
     Indication: ANKYLOSING SPONDYLITIS
     Route: 048
     Dates: start: 20070102, end: 20070219
  2. LEVOTHYROXINE SODIUM [Concomitant]
     Indication: HYPOTHYROIDISM
     Route: 048
  3. SULFASALAZINE [Concomitant]
     Indication: ANKYLOSING SPONDYLITIS
     Route: 048
     Dates: start: 20070109, end: 20070219
  4. ESCITALOPRAM OXALATE [Concomitant]
     Indication: ANKYLOSING SPONDYLITIS
     Route: 048
     Dates: start: 20070214, end: 20070216
  5. ACETAMINOPHEN AND CAFFEINE AND OPIUM [Concomitant]
     Indication: ANKYLOSING SPONDYLITIS
     Route: 048
     Dates: start: 20070214, end: 20070216
  6. TETRAZEPAM [Concomitant]
     Indication: ANKYLOSING SPONDYLITIS
     Route: 048
  7. OMEPRAZOLE [Concomitant]
     Indication: PROPHYLAXIS AGAINST GASTROINTESTINAL ULCER
     Route: 048
  8. CALCIPOTRIENE [Concomitant]
     Indication: PSORIASIS
     Route: 061
  9. BETAMETHASONE [Concomitant]
     Indication: PSORIASIS
     Route: 061

REACTIONS (10)
  - CYTOMEGALOVIRUS ANTIBODY POSITIVE [None]
  - DRUG RASH WITH EOSINOPHILIA AND SYSTEMIC SYMPTOMS [None]
  - HEPATIC ENZYME INCREASED [None]
  - HEPATIC NEOPLASM [None]
  - HYPERVENTILATION [None]
  - LYMPHADENOPATHY [None]
  - OXYGEN SATURATION DECREASED [None]
  - PYREXIA [None]
  - RASH MACULO-PAPULAR [None]
  - RENAL FAILURE [None]
